FAERS Safety Report 7517498-2 (Version None)
Quarter: 2011Q2

REPORT INFORMATION
  Report Type: 
  Country: None (occurrence: None)
  Receive Date: 20110601
  Receipt Date: 20110518
  Transmission Date: 20111010
  Serious: Yes (Hospitalization)
  Sender: FDA-Public Use
  Company Number: US-CELGENEUS-163-21880-11052446

PATIENT
  Sex: Female

DRUGS (9)
  1. KLOR-CON M20 [Concomitant]
     Route: 065
  2. NEXIUM [Concomitant]
     Route: 065
  3. ZOCOR [Concomitant]
     Route: 065
  4. TRAMADOL HCL [Concomitant]
     Route: 065
  5. NIFEDIPINE [Concomitant]
     Route: 065
  6. REVLIMID [Suspect]
     Indication: MYELODYSPLASTIC SYNDROME
     Dosage: 5 MILLIGRAM
     Route: 048
     Dates: start: 20110118, end: 20110101
  7. GLIMEPIRIDE [Concomitant]
     Route: 065
  8. XANAX [Concomitant]
     Route: 065
  9. GABAPENTIN [Concomitant]
     Route: 065

REACTIONS (1)
  - INTERVERTEBRAL DISC PROTRUSION [None]
